FAERS Safety Report 5466761-8 (Version None)
Quarter: 2007Q3

REPORT INFORMATION
  Report Type: 
  Country: None (occurrence: None)
  Receive Date: 20070924
  Receipt Date: 20070924
  Transmission Date: 20080115
  Serious: Yes (Hospitalization)
  Sender: FDA-Public Use
  Company Number: None

PATIENT
  Age: 47 Year
  Sex: Female
  Weight: 54 kg

DRUGS (11)
  1. RITUXIMAB [Suspect]
     Indication: RHEUMATOID ARTHRITIS
     Dosage: 1,000 MG/IV/SD SINGLE DOSE IV
     Route: 042
     Dates: start: 20070820
  2. DICLOFENAC [Concomitant]
  3. METHOTREXATE [Concomitant]
  4. FOLIC ACID [Concomitant]
  5. GLUCOTROL [Concomitant]
  6. METFORMIN HCL [Concomitant]
  7. LISINOPRIL [Concomitant]
  8. IRON [Concomitant]
  9. HYDROXICHLOROQUINE [Concomitant]
  10. HYDROXICHLOROTHIAZIDE [Concomitant]
  11. CALCIUM [Concomitant]

REACTIONS (1)
  - ANAEMIA [None]
